FAERS Safety Report 18086326 (Version 1)
Quarter: 2020Q3

REPORT INFORMATION
  Report Type: Spontaneous
  Country: US (occurrence: US)
  Receive Date: 20200727
  Receipt Date: 20200727
  Transmission Date: 20201103
  Serious: Yes (Life-Threatening)
  Sender: FDA-Public Use
  Company Number: None

PATIENT
  Age: 30 Year
  Sex: Male
  Weight: 63 kg

DRUGS (1)
  1. OCEANSTATE JOBLOT HAND SANITIZER [Suspect]
     Active Substance: ALCOHOL
     Indication: COVID-19 PROPHYLAXIS
     Dosage: ?          OTHER STRENGTH:64 OZ;QUANTITY:1 DROP(S);OTHER ROUTE:TOPICAL?
     Route: 061
     Dates: start: 20200717, end: 20200717

REACTIONS (5)
  - Product quality issue [None]
  - Accident [None]
  - Respiratory fume inhalation disorder [None]
  - Product formulation issue [None]
  - Product caught fire [None]

NARRATIVE: CASE EVENT DATE: 20200717
